FAERS Safety Report 17231217 (Version 1)
Quarter: 2020Q1

REPORT INFORMATION
  Report Type: Spontaneous
  Country: US (occurrence: US)
  Receive Date: 20200103
  Receipt Date: 20200103
  Transmission Date: 20200409
  Serious: No
  Sender: FDA-Public Use
  Company Number: US-PFIZER INC-2019559317

PATIENT
  Age: 75 Year
  Sex: Female
  Weight: 72 kg

DRUGS (1)
  1. IBRANCE [Suspect]
     Active Substance: PALBOCICLIB
     Indication: BREAST CANCER FEMALE
     Dosage: 125 MG, CYCLIC (1 CAPSULE FOR 21 DAYS, 7 DAYS OFF)
     Route: 048

REACTIONS (2)
  - Oral contusion [Unknown]
  - Fatigue [Unknown]
